FAERS Safety Report 23721746 (Version 1)
Quarter: 2024Q2

REPORT INFORMATION
  Report Type: Report from Study
  Country: US (occurrence: US)
  Receive Date: 20240409
  Receipt Date: 20240409
  Transmission Date: 20240715
  Serious: Yes (Other)
  Sender: FDA-Public Use
  Company Number: US-UCBSA-2024010037

PATIENT
  Sex: Male
  Weight: 76.2 kg

DRUGS (1)
  1. LEVETIRACETAM [Suspect]
     Active Substance: LEVETIRACETAM
     Indication: Seizure
     Dosage: 750MG-1 TAB BID

REACTIONS (6)
  - Seizure [Recovered/Resolved]
  - Knee operation [Unknown]
  - Dysphemia [Recovered/Resolved]
  - Therapy interrupted [Unknown]
  - Product availability issue [Unknown]
  - Inability to afford medication [Unknown]

NARRATIVE: CASE EVENT DATE: 20220101
